FAERS Safety Report 7060334-1 (Version None)
Quarter: 2010Q4

REPORT INFORMATION
  Report Type: 
  Country: None (occurrence: None)
  Receive Date: 20101025
  Receipt Date: 20101019
  Transmission Date: 20110411
  Serious: Yes (Other)
  Sender: FDA-Public Use
  Company Number: A0888304A

PATIENT
  Sex: Male

DRUGS (4)
  1. CARVEDILOL [Suspect]
     Route: 048
  2. DIOVAN [Suspect]
     Indication: PRODUCT USED FOR UNKNOWN INDICATION
     Route: 065
  3. HYDRALAZINE [Suspect]
     Route: 065
  4. SIMVASTATIN [Suspect]
     Route: 065

REACTIONS (7)
  - BLOOD PRESSURE DECREASED [None]
  - BLOOD PRESSURE INCREASED [None]
  - CEREBROVASCULAR ACCIDENT [None]
  - DYSARTHRIA [None]
  - ERECTILE DYSFUNCTION [None]
  - HEADACHE [None]
  - VISUAL IMPAIRMENT [None]
